FAERS Safety Report 5136544-7 (Version None)
Quarter: 2006Q4

REPORT INFORMATION
  Report Type: 
  Country: None (occurrence: None)
  Receive Date: 20061027
  Receipt Date: 20060913
  Transmission Date: 20070319
  Serious: Yes (Hospitalization)
  Sender: FDA-Public Use
  Company Number: CA-BOEHRINGER INGELHEIM GMBH, GERMANY-2006-CN-00484CN

PATIENT
  Sex: Female

DRUGS (4)
  1. MICARDIS [Suspect]
  2. LIPIDOR [Concomitant]
     Route: 048
  3. GEN-CITALOPRAM [Concomitant]
     Route: 048
  4. AFAPHEN [Concomitant]
     Route: 048

REACTIONS (1)
  - CEREBROVASCULAR ACCIDENT [None]
